FAERS Safety Report 5672167-9 (Version None)
Quarter: 2008Q1

REPORT INFORMATION
  Report Type: 
  Country: None (occurrence: None)
  Receive Date: 20080319
  Receipt Date: 20080312
  Transmission Date: 20080703
  Serious: Yes (Hospitalization)
  Sender: FDA-Public Use
  Company Number: GB-ABBOTT-08P-167-0442356-00

PATIENT
  Age: 36 Year
  Sex: Female

DRUGS (6)
  1. VALPROATE SODIUM [Suspect]
     Indication: DRUG USE FOR UNKNOWN INDICATION
     Route: 065
  2. VALPROATE SODIUM [Suspect]
     Route: 065
  3. VALPROATE SODIUM [Suspect]
     Route: 065
     Dates: start: 20080125, end: 20080219
  4. QUETIAPINE [Suspect]
     Indication: DRUG USE FOR UNKNOWN INDICATION
     Route: 065
     Dates: start: 20080212, end: 20080218
  5. RISPERIDONE [Concomitant]
     Indication: DRUG USE FOR UNKNOWN INDICATION
  6. DIAZEPAM [Concomitant]
     Indication: DRUG USE FOR UNKNOWN INDICATION

REACTIONS (9)
  - ALANINE AMINOTRANSFERASE INCREASED [None]
  - BLOOD CREATININE INCREASED [None]
  - GAMMA-GLUTAMYLTRANSFERASE INCREASED [None]
  - PRURITUS [None]
  - PYREXIA [None]
  - RASH [None]
  - RASH MACULAR [None]
  - SEDATION [None]
  - TACHYCARDIA [None]
